FAERS Safety Report 9366093 (Version 1)
Quarter: 2013Q2

REPORT INFORMATION
  Report Type: Spontaneous
  Country: IT (occurrence: IT)
  Receive Date: 20130625
  Receipt Date: 20130625
  Transmission Date: 20140414
  Serious: Yes (Other)
  Sender: FDA-Public Use
  Company Number: IT-TEVA-414340ISR

PATIENT
  Age: 59 Year
  Sex: Male

DRUGS (3)
  1. AMOXICILLIN [Suspect]
     Indication: TOOTH ABSCESS
     Dosage: 2 GRAM DAILY;
     Route: 048
     Dates: start: 20130421, end: 20130421
  2. KETOPROFEN [Suspect]
     Indication: TOOTH ABSCESS
     Dosage: 200 MILLIGRAM DAILY;
     Route: 048
     Dates: start: 20130421, end: 20130421
  3. METRONIDAZOLO [Suspect]
     Indication: TOOTH ABSCESS
     Dosage: 500 MILLIGRAM DAILY;
     Route: 048
     Dates: start: 20130421, end: 20130421

REACTIONS (2)
  - Angioedema [Recovering/Resolving]
  - Dysphagia [Recovering/Resolving]
